FAERS Safety Report 13304662 (Version 1)
Quarter: 2017Q1

REPORT INFORMATION
  Report Type: Spontaneous
  Country: US (occurrence: US)
  Receive Date: 20170308
  Receipt Date: 20170308
  Transmission Date: 20170428
  Serious: Yes (Death)
  Sender: FDA-Public Use
  Company Number: US-ACCORD-048807

PATIENT
  Age: 54 Year
  Sex: Male

DRUGS (1)
  1. CLOZAPINE. [Suspect]
     Active Substance: CLOZAPINE
     Indication: BIPOLAR DISORDER

REACTIONS (4)
  - Sudden cardiac death [Fatal]
  - Myocarditis [Fatal]
  - Hypersensitivity [Fatal]
  - Off label use [Unknown]
